FAERS Safety Report 9876402 (Version 3)
Quarter: 2016Q1

REPORT INFORMATION
  Report Type: Other
  Country: US (occurrence: US)
  Receive Date: 20140206
  Receipt Date: 20160207
  Transmission Date: 20160526
  Serious: No
  Sender: FDA-Public Use
  Company Number: US-ACORDA-ACO_36388_2013

PATIENT
  Sex: Female
  Weight: 73.47 kg

DRUGS (1)
  1. AMPYRA [Suspect]
     Active Substance: DALFAMPRIDINE
     Indication: MULTIPLE SCLEROSIS
     Dosage: 10 MG, BID
     Route: 048
     Dates: start: 20120213

REACTIONS (3)
  - Ophthalmoplegia [Recovered/Resolved]
  - Therapeutic response unexpected [Unknown]
  - Malaise [Not Recovered/Not Resolved]
